FAERS Safety Report 9951737 (Version 2)
Quarter: 2014Q1

REPORT INFORMATION
  Report Type: Spontaneous
  Country: US (occurrence: US)
  Receive Date: 20140304
  Receipt Date: 20140306
  Transmission Date: 20141002
  Serious: Yes (Hospitalization)
  Sender: FDA-Public Use
  Company Number: US-PFIZER INC-2014059558

PATIENT
  Age: 35 Year
  Sex: Male

DRUGS (3)
  1. VERAPAMIL HCL [Suspect]
     Dosage: 57 EXTENDED RELEASE 180-MG TABLETS (10.26 G)
  2. AMLODIPINE BESILATE [Suspect]
     Dosage: 30 5-MG TABLETS (150 MG)
  3. METOPROLOL TARTRATE [Suspect]
     Dosage: 47 METOPROLOL 25-MG TABLETS (1.18 G)

REACTIONS (10)
  - Intentional overdose [Unknown]
  - Suicide attempt [Unknown]
  - Toxicity to various agents [Recovered/Resolved]
  - Pulseless electrical activity [Recovered/Resolved]
  - Hypotension [Recovered/Resolved]
  - Sinus bradycardia [Recovered/Resolved]
  - Cardiogenic shock [Recovered/Resolved]
  - Renal failure acute [Recovered/Resolved]
  - Hyperkalaemia [Recovered/Resolved]
  - Lactic acidosis [Recovered/Resolved]
